FAERS Safety Report 5032560-4 (Version None)
Quarter: 2006Q2

REPORT INFORMATION
  Report Type: 
  Country: None (occurrence: None)
  Receive Date: 20060622
  Receipt Date: 20060614
  Transmission Date: 20061013
  Serious: Yes (Death, Hospitalization)
  Sender: FDA-Public Use
  Company Number: GB-AVENTIS-200613360EU

PATIENT
  Sex: Female

DRUGS (1)
  1. CLEXANE [Suspect]

REACTIONS (3)
  - DEEP VEIN THROMBOSIS [None]
  - DRUG DOSE OMISSION [None]
  - PULMONARY EMBOLISM [None]
